FAERS Safety Report 13743392 (Version 3)
Quarter: 2017Q3

REPORT INFORMATION
  Report Type: Spontaneous
  Country: AR (occurrence: AR)
  Receive Date: 20170711
  Receipt Date: 20170810
  Transmission Date: 20171127
  Serious: Yes (Death, Hospitalization)
  Sender: FDA-Public Use
  Company Number: PHHY2017AR100296

PATIENT
  Age: 61 Year
  Sex: Female

DRUGS (4)
  1. COSENTYX [Suspect]
     Active Substance: SECUKINUMAB
     Dosage: 300 MG, QMO (COMPLETE INDUCTION PHASE, 2 MONTHLY MAINTENANCE DOSES)
     Route: 065
     Dates: start: 20170619
  2. SALBUTAMOL [Concomitant]
     Active Substance: ALBUTEROL
     Indication: PRODUCT USED FOR UNKNOWN INDICATION
     Dosage: UNK
     Route: 065
  3. COSENTYX [Suspect]
     Active Substance: SECUKINUMAB
     Indication: PSORIASIS
     Dosage: UNK
     Route: 065
     Dates: start: 20170419
  4. SALMETEROL/FLUTICASONPROPIONAAT [Concomitant]
     Active Substance: SALMETEROL
     Indication: PRODUCT USED FOR UNKNOWN INDICATION
     Dosage: UNK
     Route: 055

REACTIONS (6)
  - Pneumonia [Fatal]
  - Influenza [Recovering/Resolving]
  - Interstitial lung disease [Fatal]
  - Respiratory distress [Fatal]
  - Concomitant disease aggravated [Fatal]
  - Pyrexia [Recovering/Resolving]

NARRATIVE: CASE EVENT DATE: 20170419
